FAERS Safety Report 17802666 (Version 1)
Quarter: 2020Q2

REPORT INFORMATION
  Report Type: Spontaneous
  Country: US (occurrence: US)
  Receive Date: 20200519
  Receipt Date: 20200519
  Transmission Date: 20200714
  Serious: Yes (Death, Life-Threatening, Hospitalization, Disabling)
  Sender: FDA-Public Use
  Company Number: None

PATIENT
  Age: 64 Year
  Sex: Male
  Weight: 58.05 kg

DRUGS (1)
  1. KEYTRUDA [Suspect]
     Active Substance: PEMBROLIZUMAB
     Indication: SQUAMOUS CELL CARCINOMA OF HEAD AND NECK
     Dosage: ?          QUANTITY:1 INJECTION(S);OTHER FREQUENCY:3 WEEKS;?
     Route: 042
     Dates: start: 20191218, end: 20200212

REACTIONS (5)
  - Disease progression [None]
  - Product complaint [None]
  - Metastases to bone [None]
  - Economic problem [None]
  - Squamous cell carcinoma [None]

NARRATIVE: CASE EVENT DATE: 20191218
